FAERS Safety Report 9041026 (Version 1)
Quarter: 2013Q1

REPORT INFORMATION
  Report Type: Spontaneous
  Country: US (occurrence: None)
  Receive Date: 20130123
  Receipt Date: 20130123
  Transmission Date: 20140127
  Serious: Yes (Life-Threatening, Hospitalization, Disabling, Other)
  Sender: FDA-Public Use
  Company Number: None

PATIENT
  Age: 74 Year
  Sex: Male
  Weight: 81.65 kg

DRUGS (1)
  1. ACTOSPLUS [Suspect]
     Indication: DIABETES MELLITUS
     Dosage: 720 PILLS DAILY  ORAL?
     Route: 048
     Dates: start: 20110427

REACTIONS (1)
  - Bladder cancer [None]
